FAERS Safety Report 18091138 (Version 3)
Quarter: 2020Q4

REPORT INFORMATION
  Report Type: Report from Study
  Country: US (occurrence: US)
  Receive Date: 20200730
  Receipt Date: 20201228
  Transmission Date: 20210113
  Serious: No
  Sender: FDA-Public Use
  Company Number: US-SA-2020SA197296

PATIENT

DRUGS (3)
  1. LORATADINE. [Concomitant]
     Active Substance: LORATADINE
  2. PSEUDOEPHEDRINE. [Concomitant]
     Active Substance: PSEUDOEPHEDRINE HYDROCHLORIDE
  3. TERIFLUNOMIDE. [Suspect]
     Active Substance: TERIFLUNOMIDE
     Indication: MULTIPLE SCLEROSIS
     Dosage: 14 MG, QD
     Route: 048
     Dates: start: 20200627, end: 20201121

REACTIONS (6)
  - Influenza like illness [Recovering/Resolving]
  - Adverse drug reaction [Unknown]
  - Diarrhoea [Unknown]
  - Apathy [Recovering/Resolving]
  - Malaise [Recovering/Resolving]
  - Abdominal discomfort [Unknown]

NARRATIVE: CASE EVENT DATE: 2020
